FAERS Safety Report 5730055-3 (Version None)
Quarter: 2008Q2

REPORT INFORMATION
  Report Type: 
  Country: None (occurrence: None)
  Receive Date: 20080507
  Receipt Date: 20080423
  Transmission Date: 20081010
  Serious: Yes (Hospitalization)
  Sender: FDA-Public Use
  Company Number: US-BAYER-200717055NA

PATIENT
  Age: 41 Year
  Sex: Female
  Weight: 122 kg

DRUGS (4)
  1. BETASERON [Suspect]
     Indication: PRIMARY PROGRESSIVE MULTIPLE SCLEROSIS
     Dosage: AS USED: 6 MIU
     Route: 058
     Dates: start: 20071109
  2. BETASERON [Suspect]
     Dosage: TOTAL DAILY DOSE: 4 MIU
     Route: 058
  3. BETASERON [Suspect]
     Dosage: TOTAL DAILY DOSE: 8 MIU
     Route: 058
  4. BACLOFEN [Concomitant]
     Route: 048

REACTIONS (9)
  - ANGINA PECTORIS [None]
  - CHEST PAIN [None]
  - CHILLS [None]
  - CONTUSION [None]
  - INFLUENZA LIKE ILLNESS [None]
  - INJECTION SITE HAEMORRHAGE [None]
  - INJECTION SITE IRRITATION [None]
  - INJECTION SITE REACTION [None]
  - PAIN [None]
